FAERS Safety Report 9212789 (Version 1)
Quarter: 2013Q1

REPORT INFORMATION
  Report Type: Spontaneous
  Country: US (occurrence: None)
  Receive Date: 20120824
  Receipt Date: 20120824
  Transmission Date: 20140127
  Serious: Yes (Hospitalization)
  Sender: FDA-Public Use
  Company Number: A-US2011-57210

PATIENT
  Age: 64 Year
  Sex: Female

DRUGS (2)
  1. VELETRI [Suspect]
     Dosage: PER MIN
     Route: 042
     Dates: start: 20110404
  2. ADCIRCA [Concomitant]

REACTIONS (4)
  - Cardiac failure congestive [None]
  - Syncope [None]
  - Hypotension [None]
  - Fluid overload [None]
